FAERS Safety Report 5701943-9 (Version None)
Quarter: 2008Q2

REPORT INFORMATION
  Report Type: 
  Country: None (occurrence: None)
  Receive Date: 20080411
  Receipt Date: 20080408
  Transmission Date: 20081010
  Serious: Yes (Other)
  Sender: FDA-Public Use
  Company Number: US-ALLERGAN-0804111US

PATIENT
  Sex: Male

DRUGS (8)
  1. COMBIGAN [Suspect]
     Indication: GLAUCOMA
     Dosage: UNK, UNKNOWN
     Route: 047
     Dates: start: 20080407
  2. PLAVIX [Concomitant]
  3. HYDROCHLORIDE [Concomitant]
  4. AVODART [Concomitant]
  5. GABAPENTIN [Concomitant]
  6. COZAAR [Concomitant]
  7. VYTORIN [Concomitant]
  8. DOXAZOSIN [Concomitant]

REACTIONS (1)
  - BRADYCARDIA [None]
